FAERS Safety Report 15167889 (Version 1)
Quarter: 2018Q3

REPORT INFORMATION
  Report Type: Report from Study
  Country: JP (occurrence: JP)
  Receive Date: 20180719
  Receipt Date: 20180719
  Transmission Date: 20181010
  Serious: Yes (Hospitalization, Other)
  Sender: FDA-Public Use
  Company Number: JP-NOVOPROD-551719

PATIENT
  Age: 72 Year
  Sex: Male
  Weight: 57 kg

DRUGS (15)
  1. TRESIBA CHU [Suspect]
     Active Substance: INSULIN DEGLUDEC
     Dosage: 8 U, QD (0?4?4U/DAY)
     Route: 058
     Dates: start: 20151106
  2. TRESIBA CHU [Suspect]
     Active Substance: INSULIN DEGLUDEC
     Dosage: 10 U, QD
     Route: 058
     Dates: start: 20170515
  3. APIDRA [Concomitant]
     Active Substance: INSULIN GLULISINE
     Dosage: 9 U, QD (0?4?5U/DAY)
     Route: 058
     Dates: start: 20160205
  4. APIDRA [Concomitant]
     Active Substance: INSULIN GLULISINE
     Dosage: 12 U, QD (2?4?6U/DAY)
     Route: 058
     Dates: start: 20170314
  5. TRAZENTA [Concomitant]
     Active Substance: LINAGLIPTIN
     Indication: TYPE 2 DIABETES MELLITUS
     Dosage: 5 MG, QD
     Route: 048
  6. METHYCOBAL [Concomitant]
     Active Substance: METHYLCOBALAMIN
     Dosage: 1.5 MG, QD
     Route: 048
  7. TRESIBA CHU [Suspect]
     Active Substance: INSULIN DEGLUDEC
     Indication: TYPE 2 DIABETES MELLITUS
     Dosage: 10 U, QD (EVENING)
     Route: 058
     Dates: start: 20150520
  8. TRESIBA CHU [Suspect]
     Active Substance: INSULIN DEGLUDEC
     Dosage: 6 U, QD (EVENING)
     Route: 058
     Dates: start: 20170711
  9. APIDRA [Concomitant]
     Active Substance: INSULIN GLULISINE
     Dosage: 8 U, QD (0?4?4U/DAY)
     Route: 058
     Dates: start: 20151106
  10. APIDRA [Concomitant]
     Active Substance: INSULIN GLULISINE
     Dosage: 11 U, QD (2?4?5U/DAY)
     Route: 058
     Dates: start: 20160405
  11. AZILVA [Concomitant]
     Active Substance: AZILSARTAN KAMEDOXOMIL
     Dosage: 40 MG, QD
     Route: 048
  12. APIDRA [Concomitant]
     Active Substance: INSULIN GLULISINE
     Indication: TYPE 2 DIABETES MELLITUS
     Dosage: 0?6?10 U/DAY
     Route: 058
  13. APIDRA [Concomitant]
     Active Substance: INSULIN GLULISINE
     Dosage: 16 U, QD (0?6?10U/DAY)
     Route: 058
     Dates: start: 20160108
  14. APIDRA [Concomitant]
     Active Substance: INSULIN GLULISINE
     Dosage: 12 U, QD (2?4?6U/DAY )
     Route: 058
     Dates: start: 20161106
  15. APIDRA [Concomitant]
     Active Substance: INSULIN GLULISINE
     Dosage: 16 U, QD (2?6?8U/DAY)
     Route: 058
     Dates: start: 20170209

REACTIONS (1)
  - Gangrene [Recovering/Resolving]

NARRATIVE: CASE EVENT DATE: 20170209
